FAERS Safety Report 8244072-5 (Version None)
Quarter: 2012Q1

REPORT INFORMATION
  Report Type: 
  Country: None (occurrence: None)
  Receive Date: 20120329
  Receipt Date: 20120319
  Transmission Date: 20120608
  Serious: Yes (Other)
  Sender: FDA-Public Use
  Company Number: BR-SANOFI-AVENTIS-2010SA058684

PATIENT
  Age: 59 Year
  Sex: Male
  Weight: 76 kg

DRUGS (8)
  1. DOCETAXEL [Suspect]
     Indication: PROSTATE CANCER METASTATIC
     Route: 042
     Dates: start: 20090114, end: 20090114
  2. HYDROCHLOROTHIAZIDE [Concomitant]
     Dates: start: 20010101
  3. ZOLADEX [Concomitant]
     Dates: start: 20080625
  4. DOCETAXEL [Suspect]
     Route: 042
     Dates: start: 20090430, end: 20090430
  5. AMILORIDE HYDROCHLORIDE [Concomitant]
     Dates: start: 20010101
  6. PREDNISONE TAB [Suspect]
     Indication: PROSTATE CANCER METASTATIC
     Route: 048
     Dates: start: 20090114, end: 20090511
  7. AFLIBERCEPT [Suspect]
     Route: 042
     Dates: start: 20090408, end: 20090408
  8. AFLIBERCEPT [Suspect]
     Indication: PROSTATE CANCER METASTATIC
     Route: 042
     Dates: start: 20090114, end: 20090114

REACTIONS (1)
  - POSTERIOR REVERSIBLE ENCEPHALOPATHY SYNDROME [None]
